FAERS Safety Report 16623189 (Version 2)
Quarter: 2019Q3

REPORT INFORMATION
  Report Type: Spontaneous
  Country: US (occurrence: US)
  Receive Date: 20190723
  Receipt Date: 20190731
  Transmission Date: 20191004
  Serious: Yes (Hospitalization, Other)
  Sender: FDA-Public Use
  Company Number: US-MALLINCKRODT-T201905103

PATIENT
  Age: 74 Year
  Sex: Female
  Weight: 78 kg

DRUGS (1)
  1. H.P. ACTHAR [Suspect]
     Active Substance: CORTICOTROPIN
     Indication: RHEUMATOID ARTHRITIS
     Dosage: 80 UNITS, TWICE WEEKLY
     Route: 058
     Dates: start: 201811

REACTIONS (4)
  - Impaired healing [Not Recovered/Not Resolved]
  - Back disorder [Not Recovered/Not Resolved]
  - Spinal operation [Not Recovered/Not Resolved]
  - Gait disturbance [Unknown]

NARRATIVE: CASE EVENT DATE: 2019
